FAERS Safety Report 5850582-8 (Version None)
Quarter: 2008Q3

REPORT INFORMATION
  Report Type: 
  Country: None (occurrence: None)
  Receive Date: 20080820
  Receipt Date: 20080808
  Transmission Date: 20090109
  Serious: Yes (Hospitalization, Other)
  Sender: FDA-Public Use
  Company Number: US-JNJFOC-20080502076

PATIENT
  Sex: Male
  Weight: 107.05 kg

DRUGS (8)
  1. INVEGA [Suspect]
     Indication: SCHIZOPHRENIA
     Route: 048
  2. LANTUS [Concomitant]
  3. HUMALOG [Concomitant]
  4. LISINOPRIL [Concomitant]
  5. CLOZARIL [Concomitant]
     Indication: SCHIZOPHRENIA
  6. LIPITOR [Concomitant]
  7. DEPAKOTE ER [Concomitant]
  8. DEPAKOTE ER [Concomitant]
     Indication: SCHIZOPHRENIA

REACTIONS (4)
  - BLOOD GLUCOSE INCREASED [None]
  - HEART RATE INCREASED [None]
  - KETONURIA [None]
  - PSYCHOTIC DISORDER [None]
